FAERS Safety Report 9917802 (Version 2)
Quarter: 2014Q2

REPORT INFORMATION
  Report Type: Spontaneous
  Country: US (occurrence: US)
  Receive Date: 20140221
  Receipt Date: 20140409
  Transmission Date: 20141212
  Serious: No
  Sender: FDA-Public Use
  Company Number: US-PFIZER INC-2014048093

PATIENT
  Age: 68 Year
  Sex: Female

DRUGS (7)
  1. ROBAXIN [Suspect]
     Dosage: UNK
  2. ANSAID [Suspect]
     Dosage: UNK
  3. FELDENE [Suspect]
     Dosage: UNK
  4. MORPHINE SULFATE [Suspect]
     Dosage: UNK
  5. CODEINE [Suspect]
     Dosage: UNK
  6. NAPROSYN [Suspect]
     Dosage: UNK
  7. SOMA [Suspect]
     Dosage: UNK

REACTIONS (1)
  - Drug hypersensitivity [Unknown]
